FAERS Safety Report 15919350 (Version 1)
Quarter: 2019Q1

REPORT INFORMATION
  Report Type: Spontaneous
  Country: JP (occurrence: JP)
  Receive Date: 20190205
  Receipt Date: 20190205
  Transmission Date: 20190417
  Serious: Yes (Other)
  Sender: FDA-Public Use
  Company Number: JP-009507513-1709JPN002998J

PATIENT
  Age: 66 Year
  Sex: Female

DRUGS (4)
  1. KEYTRUDA [Suspect]
     Active Substance: PEMBROLIZUMAB
     Indication: NON-SMALL CELL LUNG CANCER
     Dosage: 200 MILLIGRAM, Q3W
     Route: 041
     Dates: start: 20170830, end: 20170830
  2. KEYTRUDA [Suspect]
     Active Substance: PEMBROLIZUMAB
     Dosage: UNK UNK, Q3W
     Route: 041
     Dates: start: 201712, end: 201712
  3. KEYTRUDA [Suspect]
     Active Substance: PEMBROLIZUMAB
     Dosage: 200 UNK
     Route: 041
     Dates: start: 201801, end: 201801
  4. KEYTRUDA [Suspect]
     Active Substance: PEMBROLIZUMAB
     Dosage: 200 UNK
     Route: 041
     Dates: start: 201803, end: 201803

REACTIONS (3)
  - Clostridium difficile colitis [Unknown]
  - Colitis [Unknown]
  - Rash generalised [Unknown]

NARRATIVE: CASE EVENT DATE: 2017
